FAERS Safety Report 7596116-1 (Version None)
Quarter: 2011Q3

REPORT INFORMATION
  Report Type: 
  Country: None (occurrence: None)
  Receive Date: 20110707
  Receipt Date: 20110628
  Transmission Date: 20111222
  Serious: Yes (Hospitalization, Other)
  Sender: FDA-Public Use
  Company Number: BE-ABBOTT-11P-013-0730446-02

PATIENT
  Sex: Male
  Weight: 65 kg

DRUGS (11)
  1. FURACINE [Concomitant]
     Indication: MUCOSAL INFLAMMATION
     Route: 061
     Dates: start: 20091201
  2. ALENDRONATE SODIUM [Concomitant]
     Indication: OSTEOPENIA
     Dates: start: 20090520
  3. FURACINE [Concomitant]
     Indication: NASAL DISORDER
  4. HUMIRA [Suspect]
     Indication: CROHN'S DISEASE
     Route: 058
     Dates: start: 20080527, end: 20110524
  5. AZATHIOPRINE [Concomitant]
     Indication: CROHN'S DISEASE
  6. HUMIRA [Suspect]
     Route: 058
     Dates: start: 20110607
  7. PENTASA [Concomitant]
     Indication: CROHN'S DISEASE
  8. LEKOVIT CA [Concomitant]
     Indication: VITAMIN SUPPLEMENTATION
     Dates: start: 20080101
  9. OMNIBIONTA [Concomitant]
     Indication: VITAMIN SUPPLEMENTATION
     Dates: start: 20031001
  10. FERROUS GLUCONATE [Concomitant]
     Indication: IRON DEFICIENCY
     Dates: start: 20020812
  11. MAGNESIUM CITRATE [Concomitant]
     Indication: MINERAL SUPPLEMENTATION
     Dates: start: 20021104

REACTIONS (1)
  - GROIN ABSCESS [None]
